FAERS Safety Report 11849335 (Version 1)
Quarter: 2015Q4

REPORT INFORMATION
  Report Type: Spontaneous
  Country: CH (occurrence: CH)
  Receive Date: 20151218
  Receipt Date: 20151218
  Transmission Date: 20160305
  Serious: Yes (Other)
  Sender: FDA-Public Use
  Company Number: PHHY2015CH164450

PATIENT
  Age: 33 Year
  Sex: Female

DRUGS (2)
  1. MYVLAR [Concomitant]
     Indication: CHEMICAL CONTRACEPTION
     Route: 065
  2. GILENYA [Suspect]
     Active Substance: FINGOLIMOD HYDROCHLORIDE
     Indication: PRODUCT USED FOR UNKNOWN INDICATION
     Route: 065

REACTIONS (3)
  - Malaise [Unknown]
  - Tachycardia [Unknown]
  - Ventricular extrasystoles [Unknown]
